FAERS Safety Report 6093362-3 (Version None)
Quarter: 2009Q1

REPORT INFORMATION
  Report Type: 
  Country: None (occurrence: None)
  Receive Date: 20090220
  Receipt Date: 20090218
  Transmission Date: 20090719
  Serious: Yes (Hospitalization)
  Sender: FDA-Public Use
  Company Number: ADE2009-0460

PATIENT
  Age: 42 Year
  Sex: Female

DRUGS (6)
  1. FLUOXETINE HYDROCHLORIDE [Suspect]
     Indication: DEPRESSION
     Dosage: 20 MG - QD - ORAL
     Route: 048
     Dates: start: 20090105, end: 20090112
  2. BECLOMETHASONE DIPROPIONATE [Concomitant]
  3. GABAPENTIN [Concomitant]
  4. LOPERAMIDE HCL [Concomitant]
  5. ACETAMINOPHEN [Concomitant]
  6. SALBUTAMOL [Concomitant]

REACTIONS (1)
  - CONVULSION [None]
